FAERS Safety Report 6204612-4 (Version None)
Quarter: 2009Q2

REPORT INFORMATION
  Report Type: 
  Country: None (occurrence: None)
  Receive Date: 20090527
  Receipt Date: 20090513
  Transmission Date: 20091009
  Serious: Yes (Death)
  Sender: FDA-Public Use
  Company Number: PE-PFIZER INC-2009213532

PATIENT
  Age: 71 Year

DRUGS (1)
  1. ZYVOX [Suspect]
     Dosage: UNK
     Route: 051
     Dates: start: 20090319

REACTIONS (1)
  - DEATH [None]
